FAERS Safety Report 4657619-2 (Version None)
Quarter: 2005Q2

REPORT INFORMATION
  Report Type: 
  Country: None (occurrence: None)
  Receive Date: 20050405
  Receipt Date: 20040220
  Transmission Date: 20051028
  Serious: Yes (Life-Threatening, Other)
  Sender: FDA-Public Use
  Company Number: 2003121405

PATIENT
  Age: 43 Year
  Sex: Female

DRUGS (11)
  1. GEODON [Suspect]
     Indication: PSYCHOTIC DISORDER
     Dosage: 160 MG (BID), ORAL
     Route: 048
     Dates: end: 20031117
  2. GEODON [Suspect]
     Indication: SCHIZOPHRENIA
     Dosage: 160 MG (BID), ORAL
     Route: 048
     Dates: end: 20031117
  3. HALOPERIDOL [Suspect]
     Indication: ILL-DEFINED DISORDER
     Dosage: 5 MG (DAILY), ORAL
     Route: 048
     Dates: start: 20031106, end: 20031118
  4. QUETIAPINE FUMARATE [Suspect]
     Indication: SCHIZOPHRENIA
     Dosage: 1100 MG, ORAL
     Route: 048
  5. HYDROXYZINE EMBONATE [Concomitant]
  6. GEMFIBROZIL [Concomitant]
  7. LORAZEPAM [Concomitant]
  8. LEVOTHYROXINE SODIUM [Concomitant]
  9. FERROUS SULFATE TAB [Concomitant]
  10. GABAPENTIN [Concomitant]
  11. NORDETTE-21 [Concomitant]

REACTIONS (1)
  - ELECTROCARDIOGRAM QT CORRECTED INTERVAL PROLONGED [None]
